FAERS Safety Report 13055180 (Version 1)
Quarter: 2016Q4

REPORT INFORMATION
  Report Type: Spontaneous
  Country: JP (occurrence: JP)
  Receive Date: 20161222
  Receipt Date: 20161222
  Transmission Date: 20170207
  Serious: Yes (Other)
  Sender: FDA-Public Use
  Company Number: JP-GLAXOSMITHKLINE-JP2016JPN187478

PATIENT
  Age: 86 Year
  Sex: Male

DRUGS (1)
  1. RELVAR ELLIPTA [Suspect]
     Active Substance: FLUTICASONE FUROATE\VILANTEROL TRIFENATATE
     Indication: COUGH
     Dosage: UNK UNK, QD
     Route: 055
     Dates: start: 20161205

REACTIONS (6)
  - Dyspepsia [Unknown]
  - Head discomfort [Unknown]
  - Metastases to central nervous system [Unknown]
  - Off label use [Unknown]
  - Lung neoplasm malignant [Unknown]
  - Product use issue [Unknown]

NARRATIVE: CASE EVENT DATE: 20161205
